FAERS Safety Report 15675888 (Version 1)
Quarter: 2018Q4

REPORT INFORMATION
  Report Type: Spontaneous
  Country: AF (occurrence: AF)
  Receive Date: 20181129
  Receipt Date: 20181129
  Transmission Date: 20190205
  Serious: Yes (Hospitalization, Other)
  Sender: FDA-Public Use
  Company Number: None

PATIENT
  Age: 73 Year
  Sex: Female
  Weight: 100.8 kg

DRUGS (22)
  1. EX-LAX REGULAR STRENGTH STIMULANT LAXATIVE [Concomitant]
     Active Substance: SENNOSIDES
  2. METFORMIN [Concomitant]
     Active Substance: METFORMIN HYDROCHLORIDE
  3. ASPIRIN. [Concomitant]
     Active Substance: ASPIRIN
  4. HYDROXYZINE [Concomitant]
     Active Substance: HYDROXYZINE HYDROCHLORIDE
  5. ROPINIROLE. [Concomitant]
     Active Substance: ROPINIROLE
  6. IBRANCE [Suspect]
     Active Substance: PALBOCICLIB
     Indication: BREAST CANCER
     Route: 048
     Dates: start: 20180625
  7. MAGNESIUM [Concomitant]
     Active Substance: MAGNESIUM
  8. BISACODYL. [Concomitant]
     Active Substance: BISACODYL
  9. CYMBALTA [Concomitant]
     Active Substance: DULOXETINE HYDROCHLORIDE
  10. VALSARTAN. [Concomitant]
     Active Substance: VALSARTAN
  11. ACETAMINOPHEN. [Concomitant]
     Active Substance: ACETAMINOPHEN
  12. ARMOUR THYROID [Concomitant]
     Active Substance: THYROID, PORCINE
  13. BACLOFEN. [Concomitant]
     Active Substance: BACLOFEN
  14. CARVEDILOL. [Concomitant]
     Active Substance: CARVEDILOL
  15. TRICOR [Concomitant]
     Active Substance: FENOFIBRATE
  16. ALKA-SELTZER [Concomitant]
     Active Substance: ANHYDROUS CITRIC ACID\ASPIRIN\SODIUM BICARBONATE
  17. FLECTOR [Concomitant]
     Active Substance: DICLOFENAC EPOLAMINE
  18. APIDRA SOLOSTAR [Concomitant]
     Active Substance: INSULIN GLULISINE
  19. HYDROCODONE-ACETAMINOPHEN [Concomitant]
     Active Substance: ACETAMINOPHEN\HYDROCODONE
  20. LANTUS [Concomitant]
     Active Substance: INSULIN GLARGINE
  21. LETROZOLE. [Concomitant]
     Active Substance: LETROZOLE
  22. OMEPRAZOLE. [Concomitant]
     Active Substance: OMEPRAZOLE

REACTIONS (2)
  - Therapy cessation [None]
  - Cerebrovascular accident [None]

NARRATIVE: CASE EVENT DATE: 20181129
